FAERS Safety Report 6854944-1 (Version None)
Quarter: 2010Q3

REPORT INFORMATION
  Report Type: 
  Country: None (occurrence: None)
  Receive Date: 20100717
  Receipt Date: 20080404
  Transmission Date: 20110219
  Serious: No
  Sender: FDA-Public Use
  Company Number: US-PFIZER INC-2008003767

PATIENT
  Sex: Female

DRUGS (2)
  1. CHANTIX [Suspect]
     Dates: start: 20071201
  2. DRUG, UNSPECIFIED [Suspect]

REACTIONS (2)
  - ABNORMAL DREAMS [None]
  - ARTHRALGIA [None]
